FAERS Safety Report 6076113-8 (Version None)
Quarter: 2009Q1

REPORT INFORMATION
  Report Type: 
  Country: None (occurrence: None)
  Receive Date: 20090212
  Receipt Date: 20090202
  Transmission Date: 20090719
  Serious: Yes (Hospitalization)
  Sender: FDA-Public Use
  Company Number: JP-ALLERGAN-0815525US

PATIENT
  Sex: Male
  Weight: 25 kg

DRUGS (18)
  1. BOTULINUM TOXIN TYPE A [Suspect]
     Indication: TORTICOLLIS
     Dosage: 50 UNITS, SINGLE
     Route: 030
     Dates: start: 20080515, end: 20080515
  2. BOTULINUM TOXIN TYPE A [Suspect]
     Dosage: 50 UNITS, SINGLE
     Route: 030
     Dates: start: 20071025, end: 20071025
  3. DANTRIUM [Suspect]
     Indication: HYPOTONIA
     Dosage: 25 MG, QD
     Dates: start: 19950101
  4. DANTRIUM [Suspect]
     Dosage: 25 MG, QD
     Route: 033
     Dates: start: 20070426
  5. GABALON [Suspect]
     Indication: HYPOTONIA
     Dosage: 30 MG, QD
     Route: 033
     Dates: start: 20080221
  6. PHENOBARBITAL TAB [Suspect]
     Indication: EPILEPSY
     Dosage: 100 MG, QD
     Dates: start: 19950101
  7. PHENOBARBITAL TAB [Suspect]
     Dosage: 100 MG, QD
     Route: 033
     Dates: start: 20070426
  8. ARDEPHYLLIN [Concomitant]
     Indication: ASTHMA
     Dosage: 180 MG, QD
     Route: 048
  9. RIZABEN [Concomitant]
     Indication: PROPHYLAXIS
     Dosage: 100 MG, QD
     Route: 048
  10. SELBEX [Concomitant]
     Indication: PROPHYLAXIS AGAINST GASTROINTESTINAL ULCER
     Dosage: 50 MG, QD
     Route: 048
  11. CLEANAL [Concomitant]
     Indication: BRONCHITIS CHRONIC
     Dosage: 600 MG, QD
     Route: 048
  12. LUVORAVON [Concomitant]
     Indication: BRONCHITIS CHRONIC
     Dosage: 500 MG, QD
     Route: 048
  13. NEUZYM [Concomitant]
     Indication: CHRONIC SINUSITIS
     Dosage: 50 MG, QD
     Route: 048
  14. BISOLVON [Concomitant]
     Indication: BRONCHITIS CHRONIC
     Dosage: 5 MG, QD
     Route: 048
  15. PANVITAN [Concomitant]
     Indication: VITAMIN SUPPLEMENTATION
     Dosage: 1.5 G, QD
     Route: 048
  16. SUCRALFATE [Concomitant]
     Indication: PROPHYLAXIS AGAINST GASTROINTESTINAL ULCER
     Dosage: 2 G, QD
     Route: 048
  17. CHINESE MEDICINE [Concomitant]
     Indication: CONSTIPATION
     Dosage: 3 G, QD
     Route: 048
  18. TAKEPRON [Concomitant]
     Indication: GASTROOESOPHAGEAL REFLUX DISEASE
     Dosage: 15 MG, QD
     Route: 048

REACTIONS (2)
  - ACUTE RESPIRATORY FAILURE [None]
  - DYSPHAGIA [None]
